FAERS Safety Report 9221770 (Version 1)
Quarter: 2013Q2

REPORT INFORMATION
  Report Type: Spontaneous
  Country: BR (occurrence: BR)
  Receive Date: 20130410
  Receipt Date: 20130410
  Transmission Date: 20140414
  Serious: Yes (Hospitalization)
  Sender: FDA-Public Use
  Company Number: BR-JNJFOC-20130402837

PATIENT
  Age: 51 Year
  Sex: Female
  Weight: 77 kg

DRUGS (5)
  1. SIMPONI [Suspect]
     Indication: RHEUMATOID ARTHRITIS
     Route: 058
     Dates: start: 201212
  2. ARTRODAR [Concomitant]
     Indication: ARTHRITIS
     Route: 065
  3. CORTICOSTEROID NOS [Concomitant]
     Indication: ARTHRITIS
     Route: 065
  4. VITAMIN D [Concomitant]
     Indication: VITAMIN D DEFICIENCY
     Dosage: REDUCED DOSE
     Route: 065
  5. VITAMIN D [Concomitant]
     Indication: VITAMIN D DEFICIENCY
     Dosage: INITIAL DOSE
     Route: 065

REACTIONS (1)
  - Viral infection [Recovering/Resolving]
